FAERS Safety Report 25859214 (Version 3)
Quarter: 2025Q4

REPORT INFORMATION
  Report Type: Spontaneous
  Country: CA (occurrence: CA)
  Receive Date: 20250929
  Receipt Date: 20251124
  Transmission Date: 20260118
  Serious: Yes (Other)
  Sender: PFIZER
  Company Number: CA-PFIZER INC-202500024666

PATIENT
  Age: 33 Year
  Sex: Female
  Weight: 114 kg

DRUGS (4)
  1. IXIFI [Suspect]
     Active Substance: INFLIXIMAB-QBTX
     Indication: Crohn^s disease
     Dosage: 700 MG, EVERY 7 WEEKS
     Route: 042
     Dates: start: 20250623
  2. IXIFI [Suspect]
     Active Substance: INFLIXIMAB-QBTX
     Dosage: 700 MG, EVERY 7 WEEKS
     Route: 042
     Dates: start: 20250811
  3. IXIFI [Suspect]
     Active Substance: INFLIXIMAB-QBTX
     Dosage: 700 MG, EVERY 7 WEEKS
     Route: 042
     Dates: start: 20250929
  4. IXIFI [Suspect]
     Active Substance: INFLIXIMAB-QBTX
     Dosage: 700 MG, AFTER 7 WEEKS AND 2 DAYS (EVERY 7 WEEKS)
     Route: 042
     Dates: start: 20251119

REACTIONS (4)
  - Nephrolithiasis [Recovered/Resolved]
  - Off label use [Unknown]
  - Off label use [Unknown]
  - Intentional product use issue [Unknown]

NARRATIVE: CASE EVENT DATE: 20250101
